FAERS Safety Report 9928341 (Version 2)
Quarter: 2014Q1

REPORT INFORMATION
  Report Type: Spontaneous
  Country: FR (occurrence: FR)
  Receive Date: 20140227
  Receipt Date: 20140331
  Transmission Date: 20141002
  Serious: Yes (Life-Threatening, Hospitalization)
  Sender: FDA-Public Use
  Company Number: FR-SA-2014SA024006

PATIENT
  Age: 74 Year
  Sex: Male

DRUGS (3)
  1. PLAVIX [Suspect]
     Indication: PRODUCT USED FOR UNKNOWN INDICATION
     Dosage: STRENGTH: 75 MG
     Route: 048
  2. PLAVIX [Interacting]
     Indication: PRODUCT USED FOR UNKNOWN INDICATION
     Dosage: PLAVIX 300MG TABFILL
     Route: 048
     Dates: start: 20140127, end: 20140127
  3. COUMADINE [Interacting]
     Indication: PRODUCT USED FOR UNKNOWN INDICATION
     Route: 065
     Dates: end: 20140129

REACTIONS (5)
  - Shock [Recovered/Resolved]
  - Drug interaction [Unknown]
  - Vessel puncture site haematoma [Recovered/Resolved]
  - Anaemia [Recovered/Resolved]
  - Scrotal haematoma [Recovered/Resolved]
